FAERS Safety Report 8247344-3 (Version None)
Quarter: 2012Q1

REPORT INFORMATION
  Report Type: 
  Country: None (occurrence: None)
  Receive Date: 20120330
  Receipt Date: 20120323
  Transmission Date: 20120608
  Serious: Yes (Hospitalization)
  Sender: FDA-Public Use
  Company Number: US-UCBSA-041345

PATIENT
  Age: 45 Year
  Sex: Male
  Weight: 71.8 kg

DRUGS (5)
  1. TOPAMAX [Concomitant]
     Dosage: 100MG IN AM; 150 MG IN PM
     Route: 048
     Dates: start: 20110913
  2. FINASTERIDE [Concomitant]
     Indication: HAIR GROWTH ABNORMAL
     Route: 048
     Dates: start: 20090901
  3. LACOSAMIDE [Suspect]
     Indication: IDIOPATHIC GENERALISED EPILEPSY
     Route: 048
     Dates: start: 20110823
  4. LOVASTATIN [Concomitant]
     Indication: HYPERCHOLESTEROLAEMIA
     Route: 048
     Dates: start: 20100101
  5. TOPAMAX [Concomitant]
     Indication: EPILEPSY
     Route: 048
     Dates: start: 20101001, end: 20110912

REACTIONS (1)
  - CONVULSION [None]
